FAERS Safety Report 10430510 (Version 4)
Quarter: 2014Q3

REPORT INFORMATION
  Report Type: Report from Study
  Country: BR (occurrence: BR)
  Receive Date: 20140904
  Receipt Date: 20140930
  Transmission Date: 20150326
  Serious: Yes (Life-Threatening, Other)
  Sender: FDA-Public Use
  Company Number: PHHY2014BR111799

PATIENT
  Sex: Female
  Weight: 75 kg

DRUGS (5)
  1. RIVOTRIL [Suspect]
     Active Substance: CLONAZEPAM
     Indication: SLEEP DISORDER
     Dosage: 0.5 TABLET (2 MG), BID (1 IN THE AFTERNOON AND 1 AT NIGHT)
     Route: 048
  2. RIVOTRIL [Suspect]
     Active Substance: CLONAZEPAM
     Indication: FEELING OF RELAXATION
  3. DIOVAN [Suspect]
     Active Substance: VALSARTAN
     Indication: CARDIAC DISORDER
  4. DIOVAN [Suspect]
     Active Substance: VALSARTAN
     Indication: HYPERTENSION
     Dosage: 1 DF (50 MG, AS REPORTED), DAILY
     Route: 048
  5. OLCADIL [Suspect]
     Active Substance: CLOXAZOLAM
     Indication: ANXIETY
     Dosage: 1 DF (2 MG), BID (1 IN THE MORNING AND 1 AT NIGHT IF NEEDED)

REACTIONS (5)
  - Feeling abnormal [Recovering/Resolving]
  - Fall [Unknown]
  - Depression [Recovering/Resolving]
  - Panic disorder [Recovering/Resolving]
  - Blood pressure increased [Recovering/Resolving]
